FAERS Safety Report 18596223 (Version 7)
Quarter: 2021Q1

REPORT INFORMATION
  Report Type: Spontaneous
  Country: US (occurrence: US)
  Receive Date: 20201209
  Receipt Date: 20210322
  Transmission Date: 20210419
  Serious: Yes (Other)
  Sender: FDA-Public Use
  Company Number: US-PFIZER INC-2020482340

PATIENT
  Age: 63 Year
  Sex: Female

DRUGS (2)
  1. IBRANCE [Suspect]
     Active Substance: PALBOCICLIB
     Dosage: 125 MG
     Dates: start: 20201122
  2. IBRANCE [Suspect]
     Active Substance: PALBOCICLIB
     Dosage: 125 MG
     Dates: start: 20201206

REACTIONS (12)
  - Feeling hot [Unknown]
  - Fatigue [Unknown]
  - Alopecia [Unknown]
  - Muscular weakness [Unknown]
  - Breast pain [Unknown]
  - Decreased appetite [Not Recovered/Not Resolved]
  - Back pain [Recovering/Resolving]
  - Nausea [Unknown]
  - Neoplasm progression [Unknown]
  - Nipple pain [Unknown]
  - Stomatitis [Recovered/Resolved]
  - Anxiety [Unknown]

NARRATIVE: CASE EVENT DATE: 2020
